FAERS Safety Report 10196720 (Version 1)
Quarter: 2014Q2

REPORT INFORMATION
  Report Type: Spontaneous
  Country: US (occurrence: None)
  Receive Date: 20140523
  Receipt Date: 20140523
  Transmission Date: 20141212
  Serious: Yes (Death)
  Sender: FDA-Public Use
  Company Number: None

PATIENT
  Age: 39 Year
  Sex: Male

DRUGS (6)
  1. AMPYRA [Suspect]
     Indication: MULTIPLE SCLEROSIS
     Route: 048
     Dates: start: 201005, end: 201404
  2. GLATIRAMER [Concomitant]
  3. HCTZ [Concomitant]
  4. LEVETIRACETAM [Concomitant]
  5. GABAPENTIN [Concomitant]
  6. OXYBUTYNIN [Concomitant]

REACTIONS (2)
  - Pneumonia aspiration [None]
  - Depressed level of consciousness [None]
